FAERS Safety Report 20622243 (Version 4)
Quarter: 2022Q3

REPORT INFORMATION
  Report Type: Other
  Country: CA (occurrence: None)
  Receive Date: 20220322
  Receipt Date: 20220920
  Transmission Date: 20221027
  Serious: Yes (Hospitalization)
  Sender: FDA-Public Use
  Company Number: CA-ROCHE-3047196

PATIENT
  Sex: Male

DRUGS (1)
  1. OCREVUS [Suspect]
     Active Substance: OCRELIZUMAB
     Indication: Primary progressive multiple sclerosis
     Dosage: 300 MG AT DAY 0 AND 14, THEN 600 MG EVERY 6 MONTH
     Route: 042
     Dates: start: 20191220

REACTIONS (6)
  - Fatigue [Recovered/Resolved]
  - Cholelithiasis [Recovered/Resolved]
  - Muscular weakness [Recovered/Resolved]
  - Emotional disorder [Recovered/Resolved]
  - Muscular weakness [Recovered/Resolved]
  - Somnolence [Not Recovered/Not Resolved]
